FAERS Safety Report 5332456-4 (Version None)
Quarter: 2007Q2

REPORT INFORMATION
  Report Type: 
  Country: None (occurrence: None)
  Receive Date: 20070523
  Receipt Date: 20070510
  Transmission Date: 20071010
  Serious: Yes (Hospitalization)
  Sender: FDA-Public Use
  Company Number: FR-ASTRAZENECA-2006CG01122

PATIENT
  Age: 62 Year
  Sex: Male

DRUGS (5)
  1. NEXIUM [Suspect]
     Indication: OESOPHAGITIS
     Route: 048
     Dates: start: 20050515, end: 20060101
  2. NEXIUM [Suspect]
     Indication: GASTROOESOPHAGEAL REFLUX DISEASE
     Route: 048
     Dates: start: 20050515, end: 20060101
  3. NEXIUM [Suspect]
     Route: 048
     Dates: start: 20060501, end: 20060520
  4. NEXIUM [Suspect]
     Route: 048
     Dates: start: 20060501, end: 20060520
  5. IVERMECTINE [Concomitant]
     Dates: start: 20060201

REACTIONS (1)
  - EOSINOPHILIA [None]
